FAERS Safety Report 22531446 (Version 1)
Quarter: 2023Q2

REPORT INFORMATION
  Report Type: Report from Study
  Country: US (occurrence: US)
  Receive Date: 20230607
  Receipt Date: 20230607
  Transmission Date: 20230721
  Serious: Yes (Other)
  Sender: FDA-Public Use
  Company Number: US-MYLANLABS-2023M1054067

PATIENT
  Sex: Female
  Weight: 147.42 kg

DRUGS (2)
  1. GLATIRAMER ACETATE [Suspect]
     Active Substance: GLATIRAMER ACETATE
     Indication: Multiple sclerosis
     Dosage: 40 MILLIGRAM, 3XW (THREE TIMES A WEEK)
     Route: 058
  2. IRON [Concomitant]
     Active Substance: IRON
     Indication: Anaemia
     Dosage: UNK
     Route: 065

REACTIONS (5)
  - Hyperthyroidism [Unknown]
  - Panic attack [Unknown]
  - Chest pain [Unknown]
  - Weight increased [Unknown]
  - Device delivery system issue [Unknown]
